FAERS Safety Report 6613521-8 (Version None)
Quarter: 2010Q1

REPORT INFORMATION
  Report Type: 
  Country: None (occurrence: None)
  Receive Date: 20100304
  Receipt Date: 20100222
  Transmission Date: 20100710
  Serious: Yes (Hospitalization, Other)
  Sender: FDA-Public Use
  Company Number: US-ABBOTT-09P-163-0588758-00

PATIENT
  Sex: Male

DRUGS (5)
  1. HUMIRA [Suspect]
     Indication: CROHN'S DISEASE
     Route: 058
     Dates: start: 20090303, end: 20090719
  2. HUMIRA [Suspect]
  3. HUMIRA [Suspect]
  4. ACTONEL [Concomitant]
     Indication: DRUG USE FOR UNKNOWN INDICATION
     Dates: start: 20080206
  5. AZATHIOPRINE [Concomitant]
     Indication: DRUG USE FOR UNKNOWN INDICATION
     Dates: start: 20080509

REACTIONS (5)
  - DIARRHOEA [None]
  - NAUSEA [None]
  - PAIN IN EXTREMITY [None]
  - PYREXIA [None]
  - VOMITING [None]
